FAERS Safety Report 9510711 (Version 1)
Quarter: 2013Q3

REPORT INFORMATION
  Report Type: Report from Study
  Country: VE (occurrence: VE)
  Receive Date: 20130909
  Receipt Date: 20130909
  Transmission Date: 20140515
  Serious: Yes (Hospitalization)
  Sender: FDA-Public Use
  Company Number: VE-ABBOTT-13P-178-1143169-00

PATIENT
  Age: 76 Year
  Sex: Male

DRUGS (1)
  1. ZEMPLAR [Suspect]
     Indication: RENAL FAILURE CHRONIC
     Dosage: 2.3ML-3 ML WEEKLY
     Route: 042
     Dates: start: 20130716, end: 20130904

REACTIONS (1)
  - Spinal cord compression [Unknown]
